FAERS Safety Report 5545909-0 (Version None)
Quarter: 2007Q4

REPORT INFORMATION
  Report Type: 
  Country: None (occurrence: None)
  Receive Date: 20071211
  Receipt Date: 20071005
  Transmission Date: 20080405
  Serious: No
  Sender: FDA-Public Use
  Company Number: US-ASTRAZENECA-2007UW23257

PATIENT
  Age: 47 Year
  Sex: Female
  Weight: 68 kg

DRUGS (3)
  1. SYMBICORT [Suspect]
     Indication: ASTHMA
     Dosage: 2 PUFFS TWO OR THREE TIMES
     Route: 055
  2. TOPROL-XL [Concomitant]
     Route: 048
  3. ASPIRIN [Concomitant]

REACTIONS (4)
  - HEADACHE [None]
  - HEART RATE INCREASED [None]
  - RESPIRATORY DISORDER [None]
  - THROAT TIGHTNESS [None]
